FAERS Safety Report 4376969-0 (Version None)
Quarter: 2004Q2

REPORT INFORMATION
  Report Type: 
  Country: None (occurrence: None)
  Receive Date: 20040614
  Receipt Date: 20040519
  Transmission Date: 20050107
  Serious: Yes (Hospitalization, Other)
  Sender: FDA-Public Use
  Company Number: US-MERCK-0405USA01470

PATIENT
  Age: 77 Year
  Sex: Male

DRUGS (6)
  1. AMIODARONE [Concomitant]
     Indication: ATRIAL FIBRILLATION
     Route: 048
  2. ECOTRIN [Concomitant]
     Route: 065
  3. FUROSEMIDE [Concomitant]
     Route: 048
  4. LOPRESSOR [Concomitant]
     Route: 048
  5. POTASSIUM CHLORIDE [Concomitant]
     Route: 048
  6. ZOCOR [Suspect]
     Route: 048
     Dates: start: 20040301, end: 20040401

REACTIONS (5)
  - ADVERSE EVENT [None]
  - DIABETES MELLITUS [None]
  - HAEMORRHOIDS [None]
  - MYOGLOBIN BLOOD PRESENT [None]
  - RHABDOMYOLYSIS [None]
